FAERS Safety Report 5727443-8 (Version None)
Quarter: 2008Q2

REPORT INFORMATION
  Report Type: 
  Country: None (occurrence: None)
  Receive Date: 20080505
  Receipt Date: 20080423
  Transmission Date: 20081010
  Serious: Yes (Hospitalization)
  Sender: FDA-Public Use
  Company Number: GB-AMGEN-UK276036

PATIENT
  Sex: Female
  Weight: 55.8 kg

DRUGS (2)
  1. PANITUMUMAB [Suspect]
     Indication: COLORECTAL CANCER
     Route: 065
     Dates: start: 20080214
  2. IRINOTECAN HCL [Concomitant]
     Route: 065
     Dates: start: 20080214

REACTIONS (1)
  - FEBRILE NEUTROPENIA [None]
